FAERS Safety Report 9225520 (Version 2)
Quarter: 2013Q2

REPORT INFORMATION
  Report Type: Spontaneous
  Country: NL (occurrence: NL)
  Receive Date: 20130411
  Receipt Date: 20130621
  Transmission Date: 20140414
  Serious: Yes (Other)
  Sender: FDA-Public Use
  Company Number: NL-ROCHE-1209408

PATIENT
  Age: 9 Month
  Sex: Female

DRUGS (4)
  1. ACTILYSE [Suspect]
     Indication: THROMBOSIS
     Dosage: LOADING DOSE
     Route: 040
  2. ACTILYSE [Suspect]
     Route: 042
  3. ACTILYSE [Suspect]
     Route: 042
  4. HEPARIN [Suspect]
     Indication: PRODUCT USED FOR UNKNOWN INDICATION
     Route: 065

REACTIONS (2)
  - Catheter site haemorrhage [Unknown]
  - Haemoglobin decreased [Unknown]
